FAERS Safety Report 6132835-1 (Version None)
Quarter: 2009Q1

REPORT INFORMATION
  Report Type: 
  Country: None (occurrence: None)
  Receive Date: 20090326
  Receipt Date: 20090316
  Transmission Date: 20090719
  Serious: Yes (Other)
  Sender: FDA-Public Use
  Company Number: JP-ALLERGAN-0903165US

PATIENT
  Sex: Female

DRUGS (1)
  1. BOTOX [Suspect]
     Indication: SKIN WRINKLING
     Dosage: UNK, SINGLE
     Route: 031

REACTIONS (3)
  - EYELID PTOSIS [None]
  - INCORRECT ROUTE OF DRUG ADMINISTRATION [None]
  - VISUAL ACUITY REDUCED [None]
